FAERS Safety Report 13660276 (Version 1)
Quarter: 2017Q2

REPORT INFORMATION
  Report Type: Spontaneous
  Country: US (occurrence: US)
  Receive Date: 20170615
  Receipt Date: 20170615
  Transmission Date: 20170830
  Serious: Yes (Hospitalization)
  Sender: FDA-Public Use
  Company Number: None

PATIENT
  Age: 78 Year
  Sex: Female

DRUGS (2)
  1. CAPECITABINE 500 MG TEVA PHARMACEUTICALS USA INC [Suspect]
     Active Substance: CAPECITABINE
     Indication: BREAST CANCER FEMALE
     Dosage: 3 TABLETS TWICE A DAY FOR 14 DAYS ON THEN 7 DAYS OFF BY MOUTH
     Route: 048
     Dates: start: 20170427
  2. CAPECITABINE 150 MG TEVA [Suspect]
     Active Substance: CAPECITABINE
     Dosage: 1 TABLET TWICE A DAY FOR 14 DAYS ON THEN 7 DAYS OFF BY MOUTH
     Route: 048
     Dates: start: 20170427

REACTIONS (1)
  - Lymphoedema [None]

NARRATIVE: CASE EVENT DATE: 20170601
